APPROVED DRUG PRODUCT: VAZALORE
Active Ingredient: ASPIRIN
Strength: 325MG
Dosage Form/Route: CAPSULE;ORAL
Application: N203697 | Product #001
Applicant: PLX PHARMA INC
Approved: Jan 14, 2013 | RLD: Yes | RS: Yes | Type: OTC

PATENTS:
Patent 9226892 | Expires: Sep 29, 2032
Patent 9226892 | Expires: Sep 29, 2032
Patent 9226892 | Expires: Sep 29, 2032
Patent 10786444 | Expires: Sep 29, 2032
Patent 10646431 | Expires: Sep 29, 2032
Patent 9216150 | Expires: Sep 29, 2032